FAERS Safety Report 6046169-7 (Version None)
Quarter: 2009Q1

REPORT INFORMATION
  Report Type: 
  Country: None (occurrence: None)
  Receive Date: 20090122
  Receipt Date: 20090115
  Transmission Date: 20090719
  Serious: Yes (Other)
  Sender: FDA-Public Use
  Company Number: FR-JNJFOC-20081106479

PATIENT
  Sex: Male
  Weight: 86 kg

DRUGS (1)
  1. RISPERDAL [Suspect]
     Indication: PSYCHOTIC DISORDER
     Dosage: 1/2 TABLET AT MIDDAY AND ONE TABLET IN THE EVENING
     Route: 048
     Dates: start: 20000101

REACTIONS (2)
  - NIGHT BLINDNESS [None]
  - RETINAL DEGENERATION [None]
